FAERS Safety Report 7211043-7 (Version None)
Quarter: 2011Q1

REPORT INFORMATION
  Report Type: 
  Country: None (occurrence: None)
  Receive Date: 20110105
  Receipt Date: 20100916
  Transmission Date: 20110831
  Serious: Yes (Hospitalization, Other)
  Sender: FDA-Public Use
  Company Number: FR-CELGENEUS-056-21880-08100201

PATIENT
  Age: 56 Year
  Sex: Female

DRUGS (7)
  1. FLUOXETINE [Concomitant]
     Route: 065
  2. ARACLINE [Concomitant]
     Route: 065
  3. ATENOLOL [Concomitant]
     Route: 065
  4. REVLIMID [Suspect]
     Indication: MULTIPLE MYELOMA
     Route: 048
     Dates: start: 20061229, end: 20070723
  5. MOPRAL [Concomitant]
     Route: 065
  6. PARACETAMOL [Concomitant]
     Route: 065
  7. XANAX [Concomitant]
     Route: 065

REACTIONS (2)
  - PYREXIA [None]
  - INFLAMMATION [None]
